FAERS Safety Report 5848460-3 (Version None)
Quarter: 2008Q3

REPORT INFORMATION
  Report Type: 
  Country: None (occurrence: None)
  Receive Date: 20080815
  Receipt Date: 20080815
  Transmission Date: 20090109
  Serious: Yes (Other)
  Sender: FDA-Public Use
  Company Number: None

PATIENT
  Age: 57 Year
  Sex: Female
  Weight: 58.514 kg

DRUGS (1)
  1. LEVOTHYROXINE SODIUM [Suspect]
     Indication: BLOOD THYROID STIMULATING HORMONE INCREASED
     Dosage: 50 MCG ONE TABLET DAILY
     Dates: start: 20070301, end: 20071016

REACTIONS (8)
  - ANGINA PECTORIS [None]
  - CARDIAC FLUTTER [None]
  - DYSPEPSIA [None]
  - HUNGER [None]
  - INSOMNIA [None]
  - NERVOUSNESS [None]
  - PAROSMIA [None]
  - WEIGHT INCREASED [None]
